FAERS Safety Report 5756760-0 (Version None)
Quarter: 2008Q2

REPORT INFORMATION
  Report Type: 
  Country: None (occurrence: None)
  Receive Date: 20080603
  Receipt Date: 20080523
  Transmission Date: 20081010
  Serious: Yes (Death, Hospitalization)
  Sender: FDA-Public Use
  Company Number: JP-AMGEN-US277309

PATIENT
  Sex: Female

DRUGS (3)
  1. ENBREL [Suspect]
     Indication: RHEUMATOID ARTHRITIS
     Route: 058
     Dates: start: 20060821
  2. RINDERON [Suspect]
     Dosage: 0.5 MG TABS-3 TABLETS IN 3 DIVIDED DOSES (1.5 MG/DAY)
     Route: 065
     Dates: start: 20020301
  3. RHEUMATREX [Suspect]
     Dosage: 8 MG
     Route: 065
     Dates: start: 20020518, end: 20080421

REACTIONS (4)
  - CHOLECYSTITIS [None]
  - DIARRHOEA [None]
  - SEPSIS [None]
  - SHOCK [None]
